FAERS Safety Report 6102967-2 (Version None)
Quarter: 2009Q1

REPORT INFORMATION
  Report Type: 
  Country: None (occurrence: None)
  Receive Date: 20090305
  Receipt Date: 20090220
  Transmission Date: 20090719
  Serious: Yes (Other)
  Sender: FDA-Public Use
  Company Number: PHHY2009NL06564

PATIENT
  Age: 65 Year
  Sex: Male

DRUGS (4)
  1. CLOZAPINE [Suspect]
     Dosage: 200 MG/DAY
  2. CLOZAPINE [Suspect]
     Dosage: 150 MG/DAY
     Dates: start: 20090219
  3. CARBAMAZEPINE [Concomitant]
     Dosage: 1200 MG
  4. PRIMIDONE [Concomitant]
     Dosage: 2DD250MG

REACTIONS (6)
  - EOSINOPHIL PERCENTAGE INCREASED [None]
  - OEDEMA PERIPHERAL [None]
  - POSTURE ABNORMAL [None]
  - RED BLOOD CELL SEDIMENTATION RATE INCREASED [None]
  - SWELLING FACE [None]
  - WEIGHT INCREASED [None]
